FAERS Safety Report 9429048 (Version 1)
Quarter: 2013Q3

REPORT INFORMATION
  Report Type: Report from Study
  Country: US (occurrence: US)
  Receive Date: 20130730
  Receipt Date: 20130730
  Transmission Date: 20140515
  Serious: No
  Sender: FDA-Public Use
  Company Number: US-ABBOTT-12P-163-1008434-00

PATIENT
  Age: 64 Year
  Sex: Female

DRUGS (8)
  1. NIASPAN (COATED) [Suspect]
     Indication: BLOOD CHOLESTEROL INCREASED
     Dates: start: 201210
  2. LIPITOR [Concomitant]
     Indication: PRODUCT USED FOR UNKNOWN INDICATION
  3. LISINOPRIL [Concomitant]
     Indication: HYPERTENSION
  4. HUMALOG [Concomitant]
     Indication: DIABETES MELLITUS
  5. COUMADIN [Concomitant]
  6. VITAMIN D [Concomitant]
  7. TRAMADOL [Concomitant]
     Indication: ARTHRITIS
  8. ASPIRIN [Concomitant]

REACTIONS (3)
  - Paraesthesia [Recovered/Resolved]
  - Adverse drug reaction [Unknown]
  - Erythema [Recovered/Resolved]
